FAERS Safety Report 24340681 (Version 1)
Quarter: 2024Q3

REPORT INFORMATION
  Report Type: Spontaneous
  Country: FR (occurrence: FR)
  Receive Date: 20240919
  Receipt Date: 20240919
  Transmission Date: 20241017
  Serious: Yes (Hospitalization, Other)
  Sender: GLAXOSMITHKLINE
  Company Number: FR-GLAXOSMITHKLINE-FR2024EME114399

PATIENT

DRUGS (2)
  1. LAMICTAL [Suspect]
     Active Substance: LAMOTRIGINE
     Indication: Attention deficit hyperactivity disorder
     Dosage: 25 MG, QD, INCREASING EVERY FORTNIGHT
     Dates: start: 20230207
  2. LAMICTAL [Suspect]
     Active Substance: LAMOTRIGINE
     Indication: Dyspraxia

REACTIONS (46)
  - Drug reaction with eosinophilia and systemic symptoms [Unknown]
  - Myocarditis [Unknown]
  - Cardiac ventricular thrombosis [Unknown]
  - Oedema [Unknown]
  - Face oedema [Unknown]
  - Polymerase chain reaction positive [Unknown]
  - Cardiogenic shock [Unknown]
  - Cardiomyopathy [Not Recovered/Not Resolved]
  - Liver injury [Unknown]
  - Cardiac arrest [Unknown]
  - Tracheostomy [Unknown]
  - Human herpesvirus 6 infection [Unknown]
  - Heart transplant [Unknown]
  - Carditis [Unknown]
  - Transplant rejection [Unknown]
  - Epstein-Barr virus infection [Unknown]
  - Hospitalisation [Unknown]
  - Pneumothorax [Unknown]
  - Mediastinitis [Unknown]
  - Rehabilitation therapy [Unknown]
  - Erythema [Unknown]
  - Pneumonia bacterial [Unknown]
  - Dysuria [Unknown]
  - Vulvovaginal burning sensation [Unknown]
  - Vulvovaginal swelling [Unknown]
  - Rash pruritic [Unknown]
  - Night sweats [Unknown]
  - Lymphadenopathy [Unknown]
  - Toxicity to various agents [Unknown]
  - Odynophagia [Unknown]
  - Balance disorder [Unknown]
  - Vomiting [Recovered/Resolved]
  - Aggression [Unknown]
  - Abdominal pain [Recovered/Resolved]
  - Emotional distress [Unknown]
  - Pyrexia [Recovered/Resolved]
  - Venous thrombosis [Unknown]
  - Extremity necrosis [Recovering/Resolving]
  - Post-traumatic stress disorder [Unknown]
  - Mixed anxiety and depressive disorder [Unknown]
  - Condition aggravated [Unknown]
  - Rash [Unknown]
  - Blood lactate dehydrogenase increased [Unknown]
  - Memory impairment [Unknown]
  - General physical health deterioration [Unknown]
  - Extra dose administered [Unknown]

NARRATIVE: CASE EVENT DATE: 20230310
